FAERS Safety Report 8959901 (Version 1)
Quarter: 2012Q4

REPORT INFORMATION
  Report Type: Report from Study
  Country: FR (occurrence: FR)
  Receive Date: 20121212
  Receipt Date: 20121212
  Transmission Date: 20130627
  Serious: Yes (Death, Other)
  Sender: FDA-Public Use
  Company Number: FR-009507513-2011SP020019

PATIENT
  Age: 73 Year
  Sex: Female
  Weight: 89 kg

DRUGS (2)
  1. TEMOZOLOMIDE [Suspect]
     Indication: GLIOBLASTOMA
     Dosage: 130 mg/m2, UNK
     Route: 048
     Dates: start: 20110414, end: 20110418
  2. BEVACIZUMAB [Suspect]
     Indication: GLIOBLASTOMA
     Dosage: 10 mg/kg, UNK
     Dates: start: 20110414, end: 20110414

REACTIONS (2)
  - Pulmonary embolism [Fatal]
  - Respiratory failure [Recovered/Resolved]
